FAERS Safety Report 17720756 (Version 1)
Quarter: 2020Q2

REPORT INFORMATION
  Report Type: Spontaneous
  Country: US (occurrence: US)
  Receive Date: 20200428
  Receipt Date: 20200428
  Transmission Date: 20200714
  Serious: No
  Sender: FDA-Public Use
  Company Number: US-AMGEN-USASP2020068905

PATIENT
  Sex: Female

DRUGS (15)
  1. ENBREL [Suspect]
     Active Substance: ETANERCEPT
     Dosage: 50 MILLIGRAM, QWK
     Route: 058
     Dates: start: 202001
  2. OMEGA 3 [FISH OIL] [Concomitant]
     Active Substance: FISH OIL
     Dosage: 1200 MILLIGRAM
  3. ESZOPICLONE. [Concomitant]
     Active Substance: ESZOPICLONE
     Dosage: 3 MILLIGRAM
  4. ATORVASTATIN CALCIUM. [Concomitant]
     Active Substance: ATORVASTATIN CALCIUM
     Dosage: UNK
  5. CITALOPRAM HCL [Concomitant]
     Active Substance: CITALOPRAM HYDROCHLORIDE
     Dosage: 40 MILLIGRAM
  6. LITHIUM CARBONATE. [Concomitant]
     Active Substance: LITHIUM CARBONATE
     Dosage: 300 MILLIGRAM
  7. VITAMIN D3 [Concomitant]
     Active Substance: CHOLECALCIFEROL
     Dosage: 5000UNIT
  8. ENBREL [Suspect]
     Active Substance: ETANERCEPT
     Indication: PSORIATIC ARTHROPATHY
     Dosage: 50 MILLIGRAM, QWK
     Route: 058
  9. TRADJENTA [Concomitant]
     Active Substance: LINAGLIPTIN
     Dosage: 5 MILLIGRAM
  10. PANTOPRAZOLE [Concomitant]
     Active Substance: PANTOPRAZOLE
     Dosage: 40 MILLIGRAM
  11. GLIMEPIRIDE. [Concomitant]
     Active Substance: GLIMEPIRIDE
     Dosage: 4 GRAM
  12. METFORMIN HCL [Concomitant]
     Active Substance: METFORMIN HYDROCHLORIDE
     Dosage: 1000 MILLIGRAM
  13. SEROQUEL [Concomitant]
     Active Substance: QUETIAPINE FUMARATE
     Dosage: 300 MILLIGRAM
  14. VITAMIN B-1 [Concomitant]
     Active Substance: THIAMINE HYDROCHLORIDE
     Dosage: 250 MILLIGRAM
  15. ATORVASTATIN [Concomitant]
     Active Substance: ATORVASTATIN
     Dosage: 80 MILLIGRAM

REACTIONS (7)
  - Oedema peripheral [Not Recovered/Not Resolved]
  - Arthralgia [Not Recovered/Not Resolved]
  - Psoriasis [Not Recovered/Not Resolved]
  - Dyspnoea [Not Recovered/Not Resolved]
  - Drug ineffective [Unknown]
  - Contusion [Not Recovered/Not Resolved]
  - Pain [Not Recovered/Not Resolved]

NARRATIVE: CASE EVENT DATE: 2020
